FAERS Safety Report 7945429-X (Version None)
Quarter: 2011Q4

REPORT INFORMATION
  Report Type: 
  Country: None (occurrence: None)
  Receive Date: 20111129
  Receipt Date: 20111116
  Transmission Date: 20120403
  Serious: Yes (Hospitalization)
  Sender: FDA-Public Use
  Company Number: GB-ELI_LILLY_AND_COMPANY-GB201109001565

PATIENT
  Sex: Male

DRUGS (1)
  1. HUMALOG [Suspect]
     Dosage: UNK UNK, UNKNOWN
     Route: 058

REACTIONS (6)
  - VIRAL INFECTION [None]
  - HYPOGLYCAEMIA [None]
  - HYPERGLYCAEMIA [None]
  - VOMITING [None]
  - DRUG INEFFECTIVE [None]
  - DRUG INTOLERANCE [None]
